FAERS Safety Report 15871745 (Version 1)
Quarter: 2019Q1

REPORT INFORMATION
  Report Type: Other
  Country: US (occurrence: US)
  Receive Date: 20190126
  Receipt Date: 20190126
  Transmission Date: 20190417
  Serious: No
  Sender: FDA-Public Use
  Company Number: US-ACORDA-ACO_146269_2018

PATIENT
  Sex: Male

DRUGS (1)
  1. AMPYRA [Suspect]
     Active Substance: DALFAMPRIDINE
     Indication: SPINAL CORD INJURY
     Dosage: 10 MG, BID
     Route: 065
     Dates: start: 20120612

REACTIONS (4)
  - Pain [Unknown]
  - Therapy cessation [Recovered/Resolved]
  - Product use in unapproved indication [Unknown]
  - Pain in extremity [Recovered/Resolved]
